FAERS Safety Report 7740673-9 (Version None)
Quarter: 2011Q3

REPORT INFORMATION
  Report Type: 
  Country: None (occurrence: None)
  Receive Date: 20110909
  Receipt Date: 20110831
  Transmission Date: 20111222
  Serious: Yes (Other)
  Sender: FDA-Public Use
  Company Number: CO-JNJFOC-20110902266

PATIENT
  Age: 49 Year
  Sex: Female

DRUGS (6)
  1. PREDNISONE [Concomitant]
     Route: 065
  2. LEFLUNOMIDE [Concomitant]
     Route: 065
  3. REMICADE [Suspect]
     Route: 042
     Dates: start: 20060101
  4. REMICADE [Suspect]
     Indication: RHEUMATOID ARTHRITIS
     Route: 042
     Dates: end: 20110401
  5. LEVOTHYROXINE SODIUM [Concomitant]
     Indication: HYPOTHYROIDISM
     Route: 048
  6. OMEPRAZOLE [Concomitant]
     Route: 065

REACTIONS (2)
  - TUBERCULIN TEST POSITIVE [None]
  - ONYCHOMYCOSIS [None]
